FAERS Safety Report 19717824 (Version 1)
Quarter: 2021Q3

REPORT INFORMATION
  Report Type: Report from Study
  Country: GB (occurrence: GB)
  Receive Date: 20210819
  Receipt Date: 20210819
  Transmission Date: 20211014
  Serious: Yes (Other)
  Sender: FDA-Public Use
  Company Number: NVSC2021GB180976

PATIENT
  Sex: Female

DRUGS (1)
  1. HYRIMOZ [Suspect]
     Active Substance: ADALIMUMAB-ADAZ
     Indication: RHEUMATOID ARTHRITIS
     Dosage: 40 MG, FORTNIGHTLY
     Route: 058
     Dates: start: 20210726

REACTIONS (4)
  - Localised infection [Unknown]
  - Immunodeficiency [Unknown]
  - Cellulitis [Unknown]
  - Malaise [Unknown]
